FAERS Safety Report 21614057 (Version 1)
Quarter: 2022Q4

REPORT INFORMATION
  Report Type: Spontaneous
  Country: GB (occurrence: None)
  Receive Date: 20221118
  Receipt Date: 20221118
  Transmission Date: 20230113
  Serious: Yes (Other)
  Sender: FDA-Public Use
  Company Number: 2022A372097

PATIENT
  Age: 49 Year
  Sex: Male
  Weight: 108 kg

DRUGS (10)
  1. DAPAGLIFLOZIN [Suspect]
     Active Substance: DAPAGLIFLOZIN
     Indication: Diabetes mellitus
     Dosage: 10
     Route: 065
     Dates: start: 20221024, end: 20221030
  2. BEMPEDOIC ACID [Concomitant]
     Active Substance: BEMPEDOIC ACID
     Dosage: 1
     Route: 065
     Dates: start: 20220516
  3. CARBAMAZEPINE [Concomitant]
     Active Substance: CARBAMAZEPINE
     Dosage: 1/ INITIALLY INCREASIN...
     Route: 065
     Dates: start: 20220901, end: 20220929
  4. LIDOCAINE [Concomitant]
     Active Substance: LIDOCAINE
     Dosage: USE AS DIRECTED
     Route: 065
     Dates: start: 20220920, end: 20220921
  5. LINAGLIPTIN [Concomitant]
     Active Substance: LINAGLIPTIN
     Indication: Diabetes mellitus
     Dosage: 1
     Route: 065
     Dates: start: 20220516, end: 20221024
  6. OMEPRAZOLE [Concomitant]
     Active Substance: OMEPRAZOLE
     Dosage: 1/ UP TO TWICE
     Route: 065
     Dates: start: 20220516
  7. OTOMIZE [Concomitant]
     Dosage: ONE SPRAY INTO THE AFFECTED EAR(S)
     Route: 065
     Dates: start: 20220823, end: 20220830
  8. SERTRALINE [Concomitant]
     Active Substance: SERTRALINE HYDROCHLORIDE
     Dosage: 1
     Route: 065
     Dates: start: 20220516
  9. METFORMIN HYDROCHLORIDE [Concomitant]
     Active Substance: METFORMIN HYDROCHLORIDE
     Dosage: TAKE ONE TABLET WITH BREAKFAST AND ONE TABLET W...
     Route: 065
     Dates: start: 20220516
  10. TRIAMCINOLONE HEXACETONIDE [Concomitant]
     Active Substance: TRIAMCINOLONE HEXACETONIDE
     Dosage: USE AS DIRECTED
     Route: 065
     Dates: start: 20220920, end: 20220921

REACTIONS (3)
  - Gastrooesophageal reflux disease [Recovering/Resolving]
  - Headache [Recovered/Resolved]
  - Nausea [Recovered/Resolved]

NARRATIVE: CASE EVENT DATE: 20221026
